FAERS Safety Report 22912353 (Version 2)
Quarter: 2025Q1

REPORT INFORMATION
  Report Type: Spontaneous
  Country: CN (occurrence: CN)
  Receive Date: 20230906
  Receipt Date: 20250203
  Transmission Date: 20250408
  Serious: Yes (Disabling)
  Sender: PHARMACOSMOS A/S
  Company Number: CN-ADR-1411821016309202300867

PATIENT
  Age: 63 Year
  Sex: Female

DRUGS (1)
  1. TRILACICLIB [Suspect]
     Active Substance: TRILACICLIB
     Indication: Lung neoplasm malignant
     Dates: start: 20230822, end: 20230823

REACTIONS (1)
  - Myelosuppression [Recovering/Resolving]

NARRATIVE: CASE EVENT DATE: 20230824
